APPROVED DRUG PRODUCT: FLURAZEPAM HYDROCHLORIDE
Active Ingredient: FLURAZEPAM HYDROCHLORIDE
Strength: 30MG
Dosage Form/Route: CAPSULE;ORAL
Application: A071768 | Product #001
Applicant: WARNER CHILCOTT DIV WARNER LAMBERT CO
Approved: Dec 4, 1987 | RLD: No | RS: No | Type: DISCN